FAERS Safety Report 18784065 (Version 3)
Quarter: 2022Q1

REPORT INFORMATION
  Report Type: Spontaneous
  Country: US (occurrence: US)
  Receive Date: 20210125
  Receipt Date: 20220111
  Transmission Date: 20220423
  Serious: No
  Sender: FDA-Public Use
  Company Number: US-PFIZER INC-2021046206

PATIENT
  Age: 53 Year
  Sex: Female

DRUGS (2)
  1. PRISTIQ EXTENDED-RELEASE [Suspect]
     Active Substance: DESVENLAFAXINE SUCCINATE
     Indication: Depression
     Dosage: 50 MG, 1X/DAY (MORNING)
  2. PRISTIQ EXTENDED-RELEASE [Suspect]
     Active Substance: DESVENLAFAXINE SUCCINATE
     Dosage: 50 MG, 2X/DAY

REACTIONS (13)
  - Hypoacusis [Unknown]
  - Sinusitis [Unknown]
  - Dyspnoea [Unknown]
  - Throat irritation [Unknown]
  - Anosmia [Unknown]
  - Ear discomfort [Unknown]
  - Malaise [Unknown]
  - Pharyngitis [Unknown]
  - Hypersensitivity [Unknown]
  - Stress [Unknown]
  - Panic attack [Unknown]
  - Anxiety [Unknown]
  - Nervousness [Unknown]
